FAERS Safety Report 5727906-5 (Version None)
Quarter: 2008Q2

REPORT INFORMATION
  Report Type: 
  Country: None (occurrence: None)
  Receive Date: 20080505
  Receipt Date: 20080425
  Transmission Date: 20081010
  Serious: Yes (Other)
  Sender: FDA-Public Use
  Company Number: US-PFIZER INC-2008005117

PATIENT
  Sex: Male

DRUGS (2)
  1. LIPITOR [Suspect]
     Route: 048
  2. BENICAR [Suspect]
     Route: 048

REACTIONS (1)
  - LIVER DISORDER [None]
